FAERS Safety Report 21501979 (Version 1)
Quarter: 2022Q4

REPORT INFORMATION
  Report Type: Spontaneous
  Country: US (occurrence: None)
  Receive Date: 20221024
  Receipt Date: 20221024
  Transmission Date: 20230112
  Serious: No
  Sender: FDA-Public Use
  Company Number: None

PATIENT

DRUGS (1)
  1. EXEMESTANE [Suspect]
     Active Substance: EXEMESTANE

REACTIONS (1)
  - Skin cancer [None]
